FAERS Safety Report 12971877 (Version 1)
Quarter: 2016Q4

REPORT INFORMATION
  Report Type: Spontaneous
  Country: AU (occurrence: AU)
  Receive Date: 20161124
  Receipt Date: 20161124
  Transmission Date: 20170207
  Serious: Yes (Hospitalization, Other)
  Sender: FDA-Public Use
  Company Number: AU-ORION CORPORATION ORION PHARMA-TREX2016-2332

PATIENT
  Age: 71 Year
  Sex: Female

DRUGS (8)
  1. SULIDAC [Interacting]
     Active Substance: SULINDAC
     Route: 065
  2. METHOTREXATE. [Interacting]
     Active Substance: METHOTREXATE
     Route: 048
  3. METHOTREXATE. [Interacting]
     Active Substance: METHOTREXATE
     Route: 048
  4. CIMETIDINE [Interacting]
     Active Substance: CIMETIDINE
     Route: 065
  5. METHOTREXATE. [Interacting]
     Active Substance: METHOTREXATE
     Route: 048
  6. METHOTREXATE. [Suspect]
     Active Substance: METHOTREXATE
     Indication: RHEUMATOID ARTHRITIS
     Route: 048
  7. METHOTREXATE. [Interacting]
     Active Substance: METHOTREXATE
     Dosage: IN 3 DIVIDED DOSES 12 HOURS APART.
     Route: 048
  8. GOLD SODIUM THIOMALATE [Concomitant]
     Active Substance: GOLD SODIUM THIOMALATE
     Route: 030

REACTIONS (7)
  - Pancytopenia [Recovered/Resolved]
  - Drug interaction [Unknown]
  - Cholangitis [Unknown]
  - Mouth ulceration [Unknown]
  - Nausea [Unknown]
  - Marrow hyperplasia [Unknown]
  - Hepatic enzyme increased [Recovering/Resolving]
